FAERS Safety Report 9840862 (Version 2)
Quarter: 2014Q1

REPORT INFORMATION
  Report Type: Spontaneous
  Country: AR (occurrence: AR)
  Receive Date: 20140124
  Receipt Date: 20140203
  Transmission Date: 20141002
  Serious: Yes (Other)
  Sender: FDA-Public Use
  Company Number: AR-AMGEN-ARGSP2014005081

PATIENT
  Age: 39 Year
  Sex: Female

DRUGS (4)
  1. ENBREL [Suspect]
     Indication: RHEUMATOID ARTHRITIS
     Dosage: 50 MG, WEEKLY
     Route: 065
     Dates: start: 20111014
  2. ARTRAIT                            /00113801/ [Concomitant]
     Dosage: 10 MG, WEEKLY
  3. FOLIC ACID [Concomitant]
     Dosage: 5 MG, WEEKLY
  4. NAPROXEN [Concomitant]
     Dosage: 500 MG, UNK

REACTIONS (1)
  - Gallbladder disorder [Recovered/Resolved]
